FAERS Safety Report 10094660 (Version 1)
Quarter: 2014Q2

REPORT INFORMATION
  Report Type: Spontaneous
  Country: US (occurrence: US)
  Receive Date: 20140422
  Receipt Date: 20140422
  Transmission Date: 20141212
  Serious: No
  Sender: FDA-Public Use
  Company Number: US-TEVA-476593USA

PATIENT
  Sex: Female
  Weight: 65.83 kg

DRUGS (2)
  1. NUVIGIL [Suspect]
     Indication: NARCOLEPSY
     Route: 048
     Dates: start: 201311
  2. BIRTH CONTROL PILL [Concomitant]

REACTIONS (3)
  - Menorrhagia [Recovered/Resolved]
  - Menstruation irregular [Recovered/Resolved]
  - Dysmenorrhoea [Recovered/Resolved]
